FAERS Safety Report 8086597-1 (Version None)
Quarter: 2012Q1

REPORT INFORMATION
  Report Type: 
  Country: None (occurrence: None)
  Receive Date: 20120128
  Receipt Date: 20110512
  Transmission Date: 20120608
  Serious: No
  Sender: FDA-Public Use
  Company Number: US-ABBOTT-11P-163-0725288-00

PATIENT
  Sex: Male
  Weight: 81.72 kg

DRUGS (3)
  1. HUMIRA [Suspect]
     Indication: CROHN'S DISEASE
     Dates: start: 20110201, end: 20110201
  2. HUMIRA [Suspect]
     Dosage: TWO WEEKS AFTER FIRST DOSE
     Dates: start: 20110101, end: 20110101
  3. HUMIRA [Suspect]
     Dosage: TWO WEEKS AFTER SECOND DOSE
     Dates: start: 20110101, end: 20110101

REACTIONS (4)
  - PYREXIA [None]
  - RASH GENERALISED [None]
  - SKIN EXFOLIATION [None]
  - COUGH [None]
